FAERS Safety Report 18929470 (Version 2)
Quarter: 2023Q1

REPORT INFORMATION
  Report Type: Spontaneous
  Country: US (occurrence: None)
  Receive Date: 20210223
  Receipt Date: 20230223
  Transmission Date: 20230418
  Serious: No
  Sender: FDA-Public Use
  Company Number: US-ROCHE-2700360

PATIENT
  Sex: Male
  Weight: 77.180 kg

DRUGS (4)
  1. NUTROPIN [Suspect]
     Active Substance: SOMATROPIN
     Indication: Congenital anomaly
     Dosage: INJECT 1.2 MG ONCE DAILY?ONGOING : YES
     Route: 058
     Dates: start: 20190731
  2. NUTROPIN [Suspect]
     Active Substance: SOMATROPIN
  3. MIRALAX [Concomitant]
     Active Substance: POLYETHYLENE GLYCOL 3350
     Route: 048
     Dates: start: 20190725
  4. AUGMENTIN [Concomitant]
     Active Substance: AMOXICILLIN\CLAVULANATE POTASSIUM
     Route: 048
     Dates: start: 20200220

REACTIONS (3)
  - Product dose omission in error [Unknown]
  - Off label use [Unknown]
  - No adverse event [Unknown]
